FAERS Safety Report 5942164-4 (Version None)
Quarter: 2008Q4

REPORT INFORMATION
  Report Type: 
  Country: None (occurrence: None)
  Receive Date: 20081031
  Receipt Date: 20081017
  Transmission Date: 20090506
  Serious: Yes (Hospitalization)
  Sender: FDA-Public Use
  Company Number: 230136K08USA

PATIENT
  Sex: Female
  Weight: 68 kg

DRUGS (5)
  1. REBIF [Suspect]
     Indication: MULTIPLE SCLEROSIS
     Dosage: 44 MCG, 3 IN 1 WEEKS, SUBCUTANEOUS
     Route: 058
  2. NOVOLOG [Concomitant]
  3. LISINIOPRIL(LISINOPRIL) [Concomitant]
  4. LEVOXYL [Concomitant]
  5. PAXIL [Concomitant]

REACTIONS (2)
  - FALL [None]
  - FEMUR FRACTURE [None]
